FAERS Safety Report 6814083-2 (Version None)
Quarter: 2010Q3

REPORT INFORMATION
  Report Type: 
  Country: None (occurrence: None)
  Receive Date: 20100702
  Receipt Date: 20100628
  Transmission Date: 20110219
  Serious: Yes (Life-Threatening, Hospitalization, Other)
  Sender: FDA-Public Use
  Company Number: PHHY2010FR42232

PATIENT
  Sex: Male

DRUGS (3)
  1. LEPONEX [Suspect]
     Indication: SCHIZOPHRENIA
     Dosage: 425 MG, QD
     Route: 048
     Dates: start: 20100506, end: 20100522
  2. RIVOTRIL [Concomitant]
     Dosage: 3 DRP, TID
  3. PHENERGAN [Concomitant]
     Dosage: 50 MG, TID

REACTIONS (29)
  - BLOOD ALBUMIN INCREASED [None]
  - BLOOD BICARBONATE DECREASED [None]
  - BLOOD BILIRUBIN INCREASED [None]
  - BLOOD CREATINE PHOSPHOKINASE INCREASED [None]
  - BRAIN NATRIURETIC PEPTIDE INCREASED [None]
  - C-REACTIVE PROTEIN INCREASED [None]
  - CARDIAC DISORDER [None]
  - CARDIAC OUTPUT INCREASED [None]
  - COAGULATION FACTOR V LEVEL ABNORMAL [None]
  - CONFUSIONAL STATE [None]
  - CYTOLYTIC HEPATITIS [None]
  - DIARRHOEA [None]
  - DYSPNOEA [None]
  - EJECTION FRACTION DECREASED [None]
  - HYPOTENSION [None]
  - LEUKOCYTOSIS [None]
  - LUNG DISORDER [None]
  - MYOCARDIAL INFARCTION [None]
  - MYOCARDITIS [None]
  - PCO2 DECREASED [None]
  - PO2 DECREASED [None]
  - PROCALCITONIN INCREASED [None]
  - PROTHROMBIN LEVEL ABNORMAL [None]
  - PYREXIA [None]
  - RENAL FAILURE ACUTE [None]
  - RESPIRATORY DISTRESS [None]
  - SOMNOLENCE [None]
  - TACHYCARDIA [None]
  - TROPONIN INCREASED [None]
